FAERS Safety Report 21860765 (Version 2)
Quarter: 2023Q2

REPORT INFORMATION
  Report Type: Report from Study
  Country: US (occurrence: US)
  Receive Date: 20230113
  Receipt Date: 20230405
  Transmission Date: 20230722
  Serious: Yes (Other)
  Sender: FDA-Public Use
  Company Number: US-UCBSA-2022031560

PATIENT
  Age: 52 Year
  Sex: Female

DRUGS (2)
  1. CERTOLIZUMAB PEGOL [Suspect]
     Active Substance: CERTOLIZUMAB PEGOL
     Indication: Rheumatoid arthritis
     Dosage: 400 MILLIGRAM, EV 2 WEEKS(QOW)
     Dates: start: 20220428, end: 202205
  2. CERTOLIZUMAB PEGOL [Suspect]
     Active Substance: CERTOLIZUMAB PEGOL
     Dosage: 400 MILLIGRAM, EV 4 WEEKS
     Route: 058

REACTIONS (8)
  - Biopsy vagina [Recovering/Resolving]
  - Diabetes mellitus [Not Recovered/Not Resolved]
  - Rheumatoid arthritis [Not Recovered/Not Resolved]
  - Hepatitis [Not Recovered/Not Resolved]
  - Psoriasis [Not Recovered/Not Resolved]
  - Urinary tract infection [Recovering/Resolving]
  - Abdominal pain upper [Recovering/Resolving]
  - Therapeutic product effect incomplete [Unknown]

NARRATIVE: CASE EVENT DATE: 20220501
